FAERS Safety Report 7480497-3 (Version None)
Quarter: 2011Q2

REPORT INFORMATION
  Report Type: 
  Country: None (occurrence: None)
  Receive Date: 20110516
  Receipt Date: 20110502
  Transmission Date: 20111010
  Serious: Yes (Hospitalization)
  Sender: FDA-Public Use
  Company Number: US-JNJFOC-20110100914

PATIENT
  Age: 61 Year
  Sex: Female

DRUGS (14)
  1. HYDROXYCHLOROQUINE [Concomitant]
  2. LEUCOVORIN CALCIUM [Concomitant]
  3. ZOCOR [Concomitant]
  4. REMICADE [Suspect]
     Indication: RHEUMATOID ARTHRITIS
     Route: 042
     Dates: start: 20100707
  5. METOPROLOL SUCCINATE [Concomitant]
  6. FOSAMAX [Concomitant]
  7. CELEBREX [Concomitant]
  8. VITAMIN D [Concomitant]
  9. ASPIRIN [Concomitant]
  10. EFFIENT [Concomitant]
  11. ALLERTEC [Concomitant]
  12. LYSINE [Concomitant]
  13. I-CAPS [Concomitant]
  14. METHOTREXATE [Concomitant]

REACTIONS (2)
  - DRUG INEFFECTIVE [None]
  - MYOCARDIAL INFARCTION [None]
